FAERS Safety Report 9513120 (Version 3)
Quarter: 2013Q3

REPORT INFORMATION
  Report Type: Report from Study
  Country: US (occurrence: US)
  Receive Date: 20130910
  Receipt Date: 20130916
  Transmission Date: 20140515
  Serious: Yes (Life-Threatening, Hospitalization, Other)
  Sender: FDA-Public Use
  Company Number: US-ACTELION-A-US2013-84998

PATIENT
  Age: 70 Year
  Sex: Female

DRUGS (4)
  1. VENTAVIS [Suspect]
     Indication: PULMONARY ARTERIAL HYPERTENSION
     Dosage: UNK
     Route: 055
  2. TRACLEER [Suspect]
     Indication: PULMONARY ARTERIAL HYPERTENSION
     Dosage: UNK
     Route: 048
     Dates: start: 20090610
  3. ADCIRCA [Concomitant]
  4. COUMADIN [Concomitant]

REACTIONS (8)
  - Dyspnoea [Not Recovered/Not Resolved]
  - Speech disorder [Unknown]
  - Chronic obstructive pulmonary disease [Not Recovered/Not Resolved]
  - Pneumonitis [Recovered/Resolved]
  - Pneumonia [Not Recovered/Not Resolved]
  - Paralysis [Unknown]
  - Cardiac failure congestive [Recovered/Resolved]
  - Blood pressure decreased [Unknown]
